FAERS Safety Report 20816442 (Version 1)
Quarter: 2022Q2

REPORT INFORMATION
  Report Type: Report from Study
  Country: US (occurrence: US)
  Receive Date: 20220512
  Receipt Date: 20220512
  Transmission Date: 20220721
  Serious: Yes (Hospitalization)
  Sender: FDA-Public Use
  Company Number: US-BRISTOL-MYERS SQUIBB COMPANY-2022-031225

PATIENT
  Age: 66 Year
  Sex: Female
  Weight: 101.6 kg

DRUGS (1)
  1. REVLIMID [Suspect]
     Active Substance: LENALIDOMIDE
     Indication: Product used for unknown indication
     Dosage: DAILY 21 DAYS
     Route: 048
     Dates: start: 20210322

REACTIONS (1)
  - COVID-19 [Recovered/Resolved]
